FAERS Safety Report 11459915 (Version 18)
Quarter: 2017Q1

REPORT INFORMATION
  Report Type: Report from Study
  Country: IQ (occurrence: IQ)
  Receive Date: 20150904
  Receipt Date: 20170224
  Transmission Date: 20170428
  Serious: No
  Sender: FDA-Public Use
  Company Number: PHHY2015IQ103312

PATIENT
  Age: 27 Year
  Sex: Female

DRUGS (2)
  1. GLIVEC [Suspect]
     Active Substance: IMATINIB MESYLATE
     Indication: PRODUCT USED FOR UNKNOWN INDICATION
     Dosage: UNK
     Route: 065
  2. TASIGNA [Suspect]
     Active Substance: NILOTINIB
     Indication: CHRONIC MYELOID LEUKAEMIA
     Dosage: 800 MG, QD
     Route: 048
     Dates: start: 201406

REACTIONS (42)
  - Skin exfoliation [Unknown]
  - Dry skin [Not Recovered/Not Resolved]
  - Malaise [Unknown]
  - Arthralgia [Not Recovered/Not Resolved]
  - Skin discolouration [Unknown]
  - Influenza [Recovered/Resolved]
  - Bone pain [Recovered/Resolved]
  - Oropharyngeal pain [Unknown]
  - Headache [Recovered/Resolved]
  - Diarrhoea [Recovered/Resolved]
  - Spinal pain [Recovered/Resolved]
  - Boredom [Unknown]
  - Tachycardia [Recovered/Resolved]
  - Fatigue [Not Recovered/Not Resolved]
  - Abdominal pain [Recovered/Resolved]
  - Dyspnoea [Unknown]
  - Pain in extremity [Recovered/Resolved]
  - Tonsillar disorder [Unknown]
  - Tooth disorder [Not Recovered/Not Resolved]
  - Chromaturia [Not Recovered/Not Resolved]
  - Weight decreased [Not Recovered/Not Resolved]
  - Bone pain [Not Recovered/Not Resolved]
  - Pyrexia [Recovered/Resolved]
  - Decreased appetite [Not Recovered/Not Resolved]
  - Renal pain [Recovered/Resolved]
  - Dyspnoea [Recovered/Resolved]
  - Headache [Not Recovered/Not Resolved]
  - Bladder pain [Not Recovered/Not Resolved]
  - Polymerase chain reaction positive [Not Recovered/Not Resolved]
  - Hepatic enzyme increased [Unknown]
  - Nausea [Unknown]
  - Vomiting [Unknown]
  - Memory impairment [Unknown]
  - Menstrual disorder [Not Recovered/Not Resolved]
  - Arthralgia [Recovered/Resolved]
  - Constipation [Unknown]
  - Ear pain [Unknown]
  - Haemoptysis [Unknown]
  - Decreased appetite [Recovered/Resolved]
  - Pain [Recovering/Resolving]
  - Urinary tract infection [Recovered/Resolved]
  - Abdominal distension [Unknown]

NARRATIVE: CASE EVENT DATE: 2014
